FAERS Safety Report 6017167-4 (Version None)
Quarter: 2008Q4

REPORT INFORMATION
  Report Type: 
  Country: None (occurrence: None)
  Receive Date: 20081223
  Receipt Date: 20081209
  Transmission Date: 20090506
  Serious: Yes (Hospitalization)
  Sender: FDA-Public Use
  Company Number: JP-ROCHE-603249

PATIENT
  Age: 74 Year
  Sex: Male

DRUGS (1)
  1. XELODA [Suspect]
     Indication: LARGE INTESTINE CARCINOMA
     Dosage: DRUGL: XELODA 300
     Route: 048

REACTIONS (1)
  - INTESTINAL OBSTRUCTION [None]
